FAERS Safety Report 4514624-4 (Version None)
Quarter: 2004Q4

REPORT INFORMATION
  Report Type: 
  Country: None (occurrence: None)
  Receive Date: 20040927
  Receipt Date: 20040212
  Transmission Date: 20050328
  Serious: No
  Sender: FDA-Public Use
  Company Number: US064887

PATIENT
  Age: 29 Year
  Sex: Male

DRUGS (5)
  1. NEULASTA [Suspect]
     Indication: CHEMOTHERAPY
  2. TEMAZEPAM [Concomitant]
  3. MIRTAZAPINE [Concomitant]
  4. TRIMETHOPRIM-SULFAMETHOXAZOLE [Concomitant]
  5. PANTOPRAZOLE SODIUM [Concomitant]

REACTIONS (3)
  - PSORIASIS [None]
  - PYREXIA [None]
  - URTICARIA [None]
